FAERS Safety Report 5843490-X (Version None)
Quarter: 2008Q3

REPORT INFORMATION
  Report Type: 
  Country: None (occurrence: None)
  Receive Date: 20080813
  Receipt Date: 20080806
  Transmission Date: 20090109
  Serious: Yes (Hospitalization)
  Sender: FDA-Public Use
  Company Number: US-SANOFI-SYNTHELABO-A03200803144

PATIENT
  Sex: Female

DRUGS (3)
  1. AMBIEN [Suspect]
     Indication: INSOMNIA
     Route: 048
     Dates: start: 19970101, end: 20010101
  2. AMBIEN [Suspect]
     Route: 048
     Dates: start: 20010101, end: 20020101
  3. AMBIEN [Suspect]
     Route: 048
     Dates: start: 20020101, end: 20060101

REACTIONS (5)
  - AMNESIA [None]
  - DRUG ABUSE [None]
  - DRUG DEPENDENCE [None]
  - DRUG WITHDRAWAL CONVULSIONS [None]
  - JOINT DISLOCATION [None]
